FAERS Safety Report 23988137 (Version 1)
Quarter: 2024Q2

REPORT INFORMATION
  Report Type: Spontaneous
  Country: TW (occurrence: TW)
  Receive Date: 20240619
  Receipt Date: 20240619
  Transmission Date: 20240715
  Serious: Yes (Other)
  Sender: FDA-Public Use
  Company Number: None

PATIENT
  Age: 67 Year
  Sex: Male

DRUGS (12)
  1. QUETIAPINE FUMARATE [Interacting]
     Active Substance: QUETIAPINE FUMARATE
     Indication: Behaviour disorder
     Dosage: 75 MG, ONCE PER DAY
  2. QUETIAPINE FUMARATE [Interacting]
     Active Substance: QUETIAPINE FUMARATE
     Indication: Euphoric mood
     Dosage: 175 MG, ONCE PER DAY (TITRATED UP SLOWLY TO 175 MG IN TOTAL DAILY)
  3. QUETIAPINE FUMARATE [Interacting]
     Active Substance: QUETIAPINE FUMARATE
     Indication: Agitation
     Dosage: 25 MG, 2 TIMES PER DAY (BEFORE BED)
  4. QUETIAPINE FUMARATE [Interacting]
     Active Substance: QUETIAPINE FUMARATE
     Dosage: 100 MG, ONCE PER DAY (TAPERED DOWN TO 100 MG IN TOTAL DAILY)
  5. PAROXETINE [Interacting]
     Active Substance: PAROXETINE
     Indication: Behaviour disorder
     Dosage: 10 MG, ONCE PER DAY
  6. PAROXETINE [Interacting]
     Active Substance: PAROXETINE
     Dosage: 20 MG, ONCE PER DAY
  7. PAROXETINE [Interacting]
     Active Substance: PAROXETINE
     Dosage: 10 MG, ONCE PER DAY
  8. RISPERIDONE [Interacting]
     Active Substance: RISPERIDONE
     Indication: Jealous delusion
     Dosage: 1 MG, ONCE PER DAY
  9. RISPERIDONE [Interacting]
     Active Substance: RISPERIDONE
     Dosage: 2 MG, ONCE PER DAY (INCREASED TO 2 MG DAILY MAXIMUM)
  10. RISPERIDONE [Interacting]
     Active Substance: RISPERIDONE
     Dosage: CROSS TITRATED
  11. NALTREXONE [Concomitant]
     Active Substance: NALTREXONE
     Indication: Alcoholic psychosis
     Dosage: 50 MG, ONCE PER DAY
     Route: 048
  12. NALTREXONE [Concomitant]
     Active Substance: NALTREXONE
     Indication: Alcohol use disorder
     Dosage: LOW-DOSE
     Route: 048

REACTIONS (2)
  - Drug interaction [Recovered/Resolved]
  - Serotonin syndrome [Recovered/Resolved]
